FAERS Safety Report 8579315-1 (Version None)
Quarter: 2012Q3

REPORT INFORMATION
  Report Type: 
  Country: None (occurrence: None)
  Receive Date: 20120731
  Receipt Date: 20120731
  Transmission Date: 20120928
  Serious: Yes (Other)
  Sender: FDA-Public Use
  Company Number: None

PATIENT
  Sex: Male
  Weight: 104.1 kg

DRUGS (9)
  1. ACTOS [Concomitant]
  2. GLIPIZIDE [Concomitant]
  3. VENLAFAXINE [Concomitant]
  4. ADVICOR [Concomitant]
  5. VICTOZA [Suspect]
     Indication: TYPE 2 DIABETES MELLITUS
     Dosage: 1.2 MG ONCE A DAY SUBCUTANEOUS
     Route: 058
     Dates: start: 20110125, end: 20120719
  6. FOSINOPRIL SODIUM [Concomitant]
  7. TRICOR [Concomitant]
  8. ATENOLOL [Concomitant]
  9. METFORMIN HYDROCHLORIDE [Concomitant]

REACTIONS (2)
  - ABDOMINAL PAIN [None]
  - HYPERLIPASAEMIA [None]
